FAERS Safety Report 4711793-8 (Version None)
Quarter: 2005Q3

REPORT INFORMATION
  Report Type: 
  Country: None (occurrence: None)
  Receive Date: 20050712
  Receipt Date: 20050630
  Transmission Date: 20060218
  Serious: Yes (Other)
  Sender: FDA-Public Use
  Company Number: NSADSS2002005536

PATIENT
  Sex: Female

DRUGS (4)
  1. REMICADE [Suspect]
     Route: 041
     Dates: start: 20000901
  2. REMICADE [Suspect]
     Indication: RHEUMATOID ARTHRITIS
     Route: 041
     Dates: start: 20000901
  3. ISONIAZID [Concomitant]
  4. VITAMIN B6 [Concomitant]

REACTIONS (1)
  - MYCOBACTERIUM AVIUM COMPLEX INFECTION [None]
